FAERS Safety Report 13504400 (Version 1)
Quarter: 2017Q2

REPORT INFORMATION
  Report Type: Spontaneous
  Country: TR (occurrence: TR)
  Receive Date: 20170502
  Receipt Date: 20170502
  Transmission Date: 20170830
  Serious: Yes (Death, Hospitalization)
  Sender: FDA-Public Use
  Company Number: TR-TEVA-764414ROM

PATIENT
  Age: 18 Year
  Sex: Female
  Weight: 56 kg

DRUGS (1)
  1. AMLODIPINE [Suspect]
     Active Substance: AMLODIPINE BESYLATE
     Indication: SUICIDE ATTEMPT
     Dosage: 120 MG
     Route: 048

REACTIONS (12)
  - Lactic acidosis [Not Recovered/Not Resolved]
  - Hypotension [Not Recovered/Not Resolved]
  - Cardiac disorder [Not Recovered/Not Resolved]
  - Intentional overdose [Fatal]
  - Hypoxia [Fatal]
  - Loss of consciousness [Not Recovered/Not Resolved]
  - Sinus bradycardia [Not Recovered/Not Resolved]
  - Sinus tachycardia [Not Recovered/Not Resolved]
  - Metabolic acidosis [Fatal]
  - Pulmonary oedema [Fatal]
  - Suicide attempt [Fatal]
  - Cardiac arrest [Fatal]
